FAERS Safety Report 7728950-9 (Version None)
Quarter: 2011Q3

REPORT INFORMATION
  Report Type: 
  Country: None (occurrence: None)
  Receive Date: 20110831
  Receipt Date: 20110831
  Transmission Date: 20111222
  Serious: Yes (Other)
  Sender: FDA-Public Use
  Company Number: None

PATIENT
  Age: 60 Year
  Sex: Female
  Weight: 58.9676 kg

DRUGS (1)
  1. ATELVIA [Suspect]
     Indication: OSTEOPOROSIS
     Dosage: 35MG 1X WEEK (FRIDAY MORNINGS - ABOUT 7 MOS)

REACTIONS (4)
  - FOOT FRACTURE [None]
  - GAIT DISTURBANCE [None]
  - ARTHRALGIA [None]
  - LIGAMENT SPRAIN [None]
